FAERS Safety Report 6489030-6 (Version None)
Quarter: 2009Q4

REPORT INFORMATION
  Report Type: 
  Country: None (occurrence: None)
  Receive Date: 20091210
  Receipt Date: 20090921
  Transmission Date: 20100525
  Serious: No
  Sender: FDA-Public Use
  Company Number: US-AMGEN-KDL365574

PATIENT
  Weight: 55.4 kg

DRUGS (4)
  1. ENBREL [Suspect]
     Indication: RHEUMATOID ARTHRITIS
  2. HUMIRA [Suspect]
     Dates: start: 20080801
  3. PREDNISONE [Concomitant]
  4. REMICADE [Concomitant]

REACTIONS (2)
  - HYPERTENSION [None]
  - RHEUMATOID ARTHRITIS [None]
